FAERS Safety Report 16636351 (Version 2)
Quarter: 2019Q3

REPORT INFORMATION
  Report Type: Spontaneous
  Country: US (occurrence: US)
  Receive Date: 20190726
  Receipt Date: 20190919
  Transmission Date: 20191004
  Serious: No
  Sender: FDA-Public Use
  Company Number: US-PFIZER INC-2017217317

PATIENT
  Age: 77 Year
  Sex: Female
  Weight: 86.17 kg

DRUGS (1)
  1. XALKORI [Suspect]
     Active Substance: CRIZOTINIB
     Indication: LUNG NEOPLASM MALIGNANT
     Dosage: 250 MG, ALTERNATE DAY,(1 P.O EVERY OTHER DAY)
     Route: 048

REACTIONS (3)
  - Fluid retention [Unknown]
  - Vision blurred [Not Recovered/Not Resolved]
  - Weight increased [Unknown]

NARRATIVE: CASE EVENT DATE: 2019
